FAERS Safety Report 20846133 (Version 2)
Quarter: 2022Q2

REPORT INFORMATION
  Report Type: Spontaneous
  Country: US (occurrence: US)
  Receive Date: 20220518
  Receipt Date: 20220620
  Transmission Date: 20220721
  Serious: No
  Sender: FDA-Public Use
  Company Number: US-PFIZER INC-202200282164

PATIENT
  Age: 64 Year
  Sex: Female

DRUGS (1)
  1. TRAZIMERA [Suspect]
     Active Substance: TRASTUZUMAB-QYYP
     Dosage: UNK

REACTIONS (2)
  - Feeling cold [Unknown]
  - Alopecia [Unknown]
